FAERS Safety Report 5209945-6 (Version None)
Quarter: 2006Q4

REPORT INFORMATION
  Report Type: 
  Country: None (occurrence: None)
  Receive Date: 20061129
  Receipt Date: 20050919
  Transmission Date: 20070319
  Serious: Yes (Death)
  Sender: FDA-Public Use
  Company Number: 2005AC01413

PATIENT
  Age: 54 Year

DRUGS (3)
  1. AMITRIPTYLINE HCL [Suspect]
  2. LISINOPRIL [Suspect]
  3. DILTIAZEM [Suspect]

REACTIONS (1)
  - COMPLETED SUICIDE [None]
